FAERS Safety Report 4502717-7 (Version None)
Quarter: 2004Q4

REPORT INFORMATION
  Report Type: 
  Country: None (occurrence: None)
  Receive Date: 20041112
  Receipt Date: 20041102
  Transmission Date: 20050328
  Serious: No
  Sender: FDA-Public Use
  Company Number: 2004UW22645

PATIENT
  Age: 65 Year
  Sex: Male

DRUGS (2)
  1. IRESSA [Suspect]
     Indication: CARCINOID TUMOUR
     Dosage: 250 MG PO
     Route: 048
     Dates: start: 20040701
  2. IRESSA [Suspect]
     Indication: NON-SMALL CELL LUNG CANCER
     Dosage: 250 MG PO
     Route: 048
     Dates: start: 20040701

REACTIONS (1)
  - DEEP VEIN THROMBOSIS [None]
